FAERS Safety Report 7251157-9 (Version None)
Quarter: 2011Q1

REPORT INFORMATION
  Report Type: 
  Country: None (occurrence: None)
  Receive Date: 20110128
  Receipt Date: 20110121
  Transmission Date: 20110831
  Serious: No
  Sender: FDA-Public Use
  Company Number: B0695930A

PATIENT
  Sex: Male

DRUGS (6)
  1. MEDICON [Concomitant]
     Route: 048
  2. DASEN [Concomitant]
     Route: 048
     Dates: start: 20110119, end: 20110121
  3. MUCOSTA [Concomitant]
     Route: 048
  4. MUCOSIL-10 [Concomitant]
     Route: 048
  5. RELENZA [Suspect]
     Dosage: 40MG PER DAY
     Route: 055
     Dates: start: 20110121, end: 20110121
  6. CEFZON [Concomitant]
     Route: 048

REACTIONS (1)
  - OVERDOSE [None]
